FAERS Safety Report 22037425 (Version 5)
Quarter: 2024Q1

REPORT INFORMATION
  Report Type: Spontaneous
  Country: US (occurrence: US)
  Receive Date: 20230226
  Receipt Date: 20240219
  Transmission Date: 20240409
  Serious: No
  Sender: FDA-Public Use
  Company Number: US-SA-SAC20230223000941

PATIENT
  Age: 21 Year
  Sex: Male

DRUGS (3)
  1. DUPIXENT [Suspect]
     Active Substance: DUPILUMAB
     Indication: Dermatitis atopic
     Dosage: 300 MG, QOW
     Route: 058
     Dates: start: 202211
  2. VASOCLEAR [Concomitant]
     Dosage: UNK
  3. TRIAMCINOLONE [Concomitant]
     Active Substance: TRIAMCINOLONE
     Dosage: UNK

REACTIONS (8)
  - Acne [Recovering/Resolving]
  - Eye discharge [Unknown]
  - Dermatitis atopic [Not Recovered/Not Resolved]
  - Dry eye [Unknown]
  - Conjunctivitis [Unknown]
  - Injection site reaction [Unknown]
  - Injection site pain [Unknown]
  - Injection site bruising [Unknown]

NARRATIVE: CASE EVENT DATE: 20230401
